FAERS Safety Report 26214740 (Version 1)
Quarter: 2025Q4

REPORT INFORMATION
  Report Type: Spontaneous
  Country: RU (occurrence: RU)
  Receive Date: 20251230
  Receipt Date: 20251230
  Transmission Date: 20260117
  Serious: Yes (Death, Hospitalization, Other)
  Sender: PFIZER
  Company Number: RU-PFIZER INC-PV202500151303

PATIENT
  Age: 52 Year
  Sex: Female

DRUGS (5)
  1. TALZENNA [Suspect]
     Active Substance: TALAZOPARIB TOSYLATE
     Indication: Breast cancer metastatic
     Dosage: 1 MG, 1X/DAY
     Route: 048
     Dates: start: 20250219
  2. TALZENNA [Suspect]
     Active Substance: TALAZOPARIB TOSYLATE
     Dosage: 1 MG, 1X/DAY, (SECOND COURSE)
     Route: 048
     Dates: start: 20250321
  3. TALZENNA [Suspect]
     Active Substance: TALAZOPARIB TOSYLATE
     Dosage: 1 MG, 1X/DAY, (THIRD COURSE)
     Route: 048
     Dates: start: 20250430
  4. TALZENNA [Suspect]
     Active Substance: TALAZOPARIB TOSYLATE
     Dosage: 0.75 MG, 1X/DAY, (FOURTH COURSE)
     Route: 048
     Dates: start: 20250530
  5. TALZENNA [Suspect]
     Active Substance: TALAZOPARIB TOSYLATE
     Dosage: 0.75 MG, 1X/DAY, (FIFTH COURSE)
     Route: 048
     Dates: start: 20250630, end: 20250921

REACTIONS (5)
  - Breast cancer metastatic [Fatal]
  - Malignant neoplasm progression [Fatal]
  - Loss of consciousness [Unknown]
  - Seizure [Unknown]
  - Anaemia [Recovered/Resolved]

NARRATIVE: CASE EVENT DATE: 20250301
